FAERS Safety Report 17697265 (Version 2)
Quarter: 2020Q2

REPORT INFORMATION
  Report Type: Report from Study
  Country: IT (occurrence: IT)
  Receive Date: 20200423
  Receipt Date: 20200603
  Transmission Date: 20200714
  Serious: Yes (Other)
  Sender: FDA-Public Use
  Company Number: IT-SUN PHARMACEUTICAL INDUSTRIES LTD-2020RR-244843

PATIENT
  Age: 44 Year
  Sex: Female

DRUGS (5)
  1. BEDROCAN OIL 10% [Interacting]
     Active Substance: CANNABIS SATIVA SEED OIL\HERBALS
     Indication: NEURALGIA
     Dosage: 150 MILLIGRAM, DAILY
     Route: 048
  2. BEDROCAN OIL 10% [Interacting]
     Active Substance: CANNABIS SATIVA SEED OIL\HERBALS
     Indication: FIBROMYALGIA
  3. DULOXETINE. [Concomitant]
     Active Substance: DULOXETINE
     Indication: PRODUCT USED FOR UNKNOWN INDICATION
     Dosage: UNK
     Route: 065
  4. MAGNESIUM [Concomitant]
     Active Substance: MAGNESIUM
     Indication: PRODUCT USED FOR UNKNOWN INDICATION
     Dosage: UNK
     Route: 065
  5. PREGABALIN. [Suspect]
     Active Substance: PREGABALIN
     Indication: PRODUCT USED FOR UNKNOWN INDICATION
     Dosage: UNK
     Route: 065

REACTIONS (4)
  - Dizziness [Unknown]
  - Tachyarrhythmia [Unknown]
  - Drug interaction [Unknown]
  - Dysphoria [Unknown]
